FAERS Safety Report 24949724 (Version 1)
Quarter: 2025Q1

REPORT INFORMATION
  Report Type: Spontaneous
  Country: CA (occurrence: CA)
  Receive Date: 20250210
  Receipt Date: 20250210
  Transmission Date: 20250409
  Serious: Yes (Other)
  Sender: HIKMA
  Company Number: CA-HIKMA PHARMACEUTICALS-CA-H14001-25-01221

PATIENT
  Age: 55 Year
  Sex: Male

DRUGS (1)
  1. CEFAZOLIN [Suspect]
     Active Substance: CEFAZOLIN
     Indication: Product used for unknown indication
     Route: 040

REACTIONS (8)
  - Airway complication of anaesthesia [Unknown]
  - Asthmatic crisis [Unknown]
  - Blood pressure decreased [Unknown]
  - Laryngeal mask airway insertion [Unknown]
  - Muscle rigidity [Unknown]
  - Oxygen saturation decreased [Unknown]
  - Erythema [Unknown]
  - Anaphylactic reaction [Unknown]
